FAERS Safety Report 8111235-9 (Version None)
Quarter: 2012Q1

REPORT INFORMATION
  Report Type: 
  Country: None (occurrence: None)
  Receive Date: 20120203
  Receipt Date: 20110707
  Transmission Date: 20120608
  Serious: No
  Sender: FDA-Public Use
  Company Number: US-GLAXOSMITHKLINE-A0935353A

PATIENT
  Sex: Female

DRUGS (9)
  1. LAMOTRIGINE [Suspect]
     Indication: BIPOLAR DISORDER
     Dosage: 200MG TWICE PER DAY
     Route: 048
  2. NEURONTIN [Concomitant]
  3. MINIPRESS [Concomitant]
  4. SKELAXIN [Concomitant]
  5. IMITREX [Concomitant]
  6. SYNTHROID [Concomitant]
  7. RITALIN [Concomitant]
  8. MAXALT [Concomitant]
  9. TRAZODONE HCL [Concomitant]

REACTIONS (3)
  - HYPERSENSITIVITY [None]
  - MALAISE [None]
  - DRUG INEFFECTIVE [None]
